FAERS Safety Report 9668022 (Version 3)
Quarter: 2014Q1

REPORT INFORMATION
  Report Type: Report from Study
  Country: CA (occurrence: CA)
  Receive Date: 20131104
  Receipt Date: 20140210
  Transmission Date: 20141002
  Serious: Yes (Hospitalization)
  Sender: FDA-Public Use
  Company Number: CA-SA-2013SA110531

PATIENT
  Age: 53 Year
  Sex: Female

DRUGS (9)
  1. TAXOTERE [Suspect]
     Indication: BREAST CANCER
     Route: 042
     Dates: start: 20030122, end: 20030122
  2. DECADRON [Suspect]
     Indication: PROPHYLAXIS
     Route: 042
     Dates: start: 20030122
  3. DIPHENHYDRAMINE [Concomitant]
     Dates: start: 20030122, end: 20030122
  4. EFFEXOR-XR [Concomitant]
  5. GLYBURIDE [Concomitant]
     Dates: start: 1992
  6. INSULIN [Concomitant]
     Dates: start: 1993
  7. METFORMIN [Concomitant]
     Dates: start: 1993
  8. ONDANSETRON [Concomitant]
     Dates: start: 20030122, end: 20030122
  9. VIOXX [Concomitant]

REACTIONS (6)
  - Hyperglycaemia [Recovered/Resolved]
  - Diabetic ketoacidosis [Unknown]
  - Disorientation [Unknown]
  - Chest pain [Unknown]
  - Klebsiella sepsis [Recovered/Resolved]
  - Peripheral sensory neuropathy [Unknown]
